FAERS Safety Report 4869327-3 (Version None)
Quarter: 2005Q4

REPORT INFORMATION
  Report Type: 
  Country: None (occurrence: None)
  Receive Date: 20051228
  Receipt Date: 20051228
  Transmission Date: 20060501
  Serious: No
  Sender: FDA-Public Use
  Company Number: None

PATIENT
  Sex: Male
  Weight: 75.2971 kg

DRUGS (1)
  1. INTERFERON ALPHA [Suspect]
     Dosage: 3X WK SQ
     Route: 058

REACTIONS (1)
  - RHEUMATOID ARTHRITIS [None]
